FAERS Safety Report 7059664-9 (Version None)
Quarter: 2010Q4

REPORT INFORMATION
  Report Type: 
  Country: None (occurrence: None)
  Receive Date: 20101025
  Receipt Date: 20100714
  Transmission Date: 20110411
  Serious: No
  Sender: FDA-Public Use
  Company Number: US-MYLANLABS-2010S1012748

PATIENT
  Age: 50 Year
  Sex: Female
  Weight: 68.04 kg

DRUGS (5)
  1. DIVALPROEX SODIUM EXTENDED RELEASE [Suspect]
     Indication: ANXIETY
     Route: 048
     Dates: start: 20100501
  2. DIVALPROEX SODIUM EXTENDED RELEASE [Suspect]
     Route: 048
     Dates: start: 20100501, end: 20100101
  3. DIVALPROEX SODIUM EXTENDED RELEASE [Suspect]
     Route: 048
     Dates: start: 20100101, end: 20100101
  4. DIVALPROEX SODIUM EXTENDED RELEASE [Suspect]
     Route: 048
     Dates: start: 20100101, end: 20100101
  5. DIVALPROEX SODIUM EXTENDED RELEASE [Suspect]
     Route: 048
     Dates: start: 20100101, end: 20100701

REACTIONS (3)
  - DYSPEPSIA [None]
  - INSOMNIA [None]
  - PARAESTHESIA [None]
